FAERS Safety Report 8579965 (Version 3)
Quarter: 2012Q4

REPORT INFORMATION
  Report Type: 
  Country: US (occurrence: US)
  Receive Date: 20120525
  Receipt Date: 20120926
  Transmission Date: 20130627
  Serious: Yes (Hospitalization, Other)
  Sender: FDA-Public Use
  Company Number: US-PFIZER INC-2012123271

PATIENT
  Age: 61 Year
  Sex: Female
  Weight: 74.83 kg

DRUGS (31)
  1. ADVIL [Suspect]
     Dosage: 500 mg, 1x/day
     Route: 048
     Dates: start: 20110821, end: 20110824
  2. PREDNISONE [Suspect]
     Indication: TRAUMATIC HAEMORRHAGE
     Dosage: 500 mg, 2x/day
     Route: 048
     Dates: start: 20110820
  3. PREDNISONE [Suspect]
     Indication: MOUTH HAEMORRHAGE
     Dosage: 20 mg, UNK
  4. PREDNISONE [Suspect]
     Indication: EPISTAXIS
  5. PREDNISONE [Suspect]
     Indication: EYE HAEMORRHAGE
  6. SODIUM CHLORIDE [Concomitant]
     Dosage: 0.9% INJ 10 ml
  7. METHYLPREDNISOLONE SODIUM SUCCINATE [Concomitant]
     Dosage: 500 mg, UNK
  8. IMMUNOGLOBULINS [Concomitant]
     Dosage: 20gm/200ml
     Route: 042
  9. OMEPRAZOLE [Concomitant]
     Dosage: 20 mg, UNK
  10. LEVOTHYROXINE [Concomitant]
     Dosage: 88 ug, UNK
  11. LISINOPRIL [Concomitant]
     Dosage: 5 mg, UNK
  12. LISINOPRIL [Concomitant]
     Dosage: 10 mg, UNK
  13. NOVOLIN R [Concomitant]
     Dosage: UNK
  14. METFORMIN [Concomitant]
     Dosage: 500 mg, UNK
  15. MEVACOR [Concomitant]
     Dosage: 40 mg, UNK
  16. DIPHENHYDRAMINE [Concomitant]
     Dosage: 25 mg, UNK
  17. ACETAMINOPHEN [Concomitant]
     Dosage: 325 mg, UNK
  18. ACETAMINOPHEN [Concomitant]
     Dosage: 500 mg, UNK
  19. GLYBURIDE [Concomitant]
     Dosage: 5 mg, UNK
  20. METOPROLOL [Concomitant]
     Dosage: 25 mg, UNK
  21. METOPROLOL [Concomitant]
     Dosage: 50 mg, UNK
  22. ASCORBIC ACID [Concomitant]
     Dosage: 250 mg, UNK
  23. CENTRUM [Concomitant]
     Dosage: UNK
  24. COLECALCIFEROL [Concomitant]
     Dosage: 1000 IU, UNK
  25. ALPRAZOLAM [Concomitant]
     Dosage: 0.5 mg, UNK
  26. FERROUS SULFATE [Concomitant]
     Dosage: 325 mg, UNK
  27. POTASSIUM CHLORIDE [Concomitant]
     Dosage: 20 mEq, UNK
  28. LORTAB [Concomitant]
     Dosage: UNK
  29. LOVASTATIN [Concomitant]
     Dosage: UNK
  30. VITAMIN D [Concomitant]
     Dosage: UNK
  31. TYLENOL [Concomitant]
     Dosage: UNK

REACTIONS (29)
  - Idiopathic thrombocytopenic purpura [Unknown]
  - Traumatic haemorrhage [Recovering/Resolving]
  - Mouth haemorrhage [Not Recovered/Not Resolved]
  - Epistaxis [Not Recovered/Not Resolved]
  - Eye haemorrhage [Not Recovered/Not Resolved]
  - Oral mucosal blistering [Unknown]
  - Blood blister [Not Recovered/Not Resolved]
  - Fatigue [Not Recovered/Not Resolved]
  - Asthenia [Not Recovered/Not Resolved]
  - Impaired work ability [Not Recovered/Not Resolved]
  - Renal haemorrhage [Unknown]
  - Blood urine present [Unknown]
  - Blood pressure fluctuation [Unknown]
  - Hypertension [Unknown]
  - Osteomyelitis [Unknown]
  - Limb amputation [Unknown]
  - Hyperglycaemia [Unknown]
  - Petechiae [Unknown]
  - Blood disorder [Unknown]
  - Tongue disorder [Unknown]
  - Mucous membrane disorder [Unknown]
  - Ecchymosis [Unknown]
  - Mucosal inflammation [Unknown]
  - Blood cholesterol increased [Unknown]
  - Rash [Unknown]
  - Dysuria [Unknown]
  - Gait disturbance [Unknown]
  - Contusion [Unknown]
  - Therapeutic response unexpected [Unknown]
